FAERS Safety Report 8997967 (Version 1)
Quarter: 2013Q1

REPORT INFORMATION
  Report Type: Spontaneous
  Country: US (occurrence: US)
  Receive Date: 20130104
  Receipt Date: 20130104
  Transmission Date: 20140127
  Serious: Yes (Other)
  Sender: FDA-Public Use
  Company Number: PHHY2012US121884

PATIENT
  Age: 68 Year
  Sex: Female

DRUGS (4)
  1. ASCRIPTIN BUFFERED MAX STRENGTH CAPLETS [Suspect]
     Indication: PAIN
     Dosage: UNK UKN, UNK
     Route: 048
  2. ASCRIPTIN BUFFERED MAX STRENGTH CAPLETS [Suspect]
     Dosage: 2 DF, UNK
     Route: 048
  3. ASCRIPTIN BUFFERED MAX STRENGTH CAPLETS [Suspect]
     Dosage: 3 DF, UNK
     Route: 048
     Dates: start: 2000
  4. THYROID THERAPY [Concomitant]

REACTIONS (3)
  - Tendon rupture [Not Recovered/Not Resolved]
  - Tendon pain [Not Recovered/Not Resolved]
  - Arthralgia [Unknown]
